FAERS Safety Report 10056184 (Version 24)
Quarter: 2016Q2

REPORT INFORMATION
  Report Type: Report from Study
  Country: CA (occurrence: CA)
  Receive Date: 20140403
  Receipt Date: 20160617
  Transmission Date: 20160815
  Serious: Yes (Hospitalization, Other)
  Sender: FDA-Public Use
  Company Number: CA-ROCHE-1283628

PATIENT
  Age: 79 Year
  Sex: Female
  Weight: 46 kg

DRUGS (5)
  1. VITAMIN B12 [Concomitant]
     Active Substance: CYANOCOBALAMIN
  2. SULINDAC. [Concomitant]
     Active Substance: SULINDAC
  3. ACTEMRA [Suspect]
     Active Substance: TOCILIZUMAB
     Route: 042
     Dates: start: 20160127
  4. ACTEMRA [Suspect]
     Active Substance: TOCILIZUMAB
     Indication: RHEUMATOID ARTHRITIS
     Route: 042
     Dates: start: 20130828
  5. ACTEMRA [Suspect]
     Active Substance: TOCILIZUMAB
     Route: 042
     Dates: start: 20140114

REACTIONS (11)
  - Hypotension [Unknown]
  - Infusion related reaction [Unknown]
  - Fall [Unknown]
  - Pain in extremity [Not Recovered/Not Resolved]
  - Blood pressure increased [Unknown]
  - Pain in extremity [Unknown]
  - Impaired healing [Unknown]
  - Body temperature decreased [Unknown]
  - Lower limb fracture [Unknown]
  - Blood pressure increased [Unknown]
  - Heart rate decreased [Unknown]

NARRATIVE: CASE EVENT DATE: 20130927
